FAERS Safety Report 6913800-0 (Version None)
Quarter: 2010Q3

REPORT INFORMATION
  Report Type: 
  Country: None (occurrence: None)
  Receive Date: 20100809
  Receipt Date: 20100730
  Transmission Date: 20110219
  Serious: Yes (Hospitalization, Other)
  Sender: FDA-Public Use
  Company Number: US-ROCHE-707644

PATIENT
  Sex: Female

DRUGS (2)
  1. PEGINTERFERON ALFA-2A [Suspect]
     Indication: HEPATITIS C
     Dosage: FORM:PRE FILLED SYRINGE; IN WEEK 16
     Route: 058
     Dates: start: 20100414
  2. RIBAVIRIN [Suspect]
     Indication: HEPATITIS C
     Dosage: DIVIDED DOSES; IN WEEK 16
     Route: 048
     Dates: start: 20100414

REACTIONS (18)
  - BRAIN NEOPLASM [None]
  - CONDITION AGGRAVATED [None]
  - DRUG INEFFECTIVE [None]
  - FATIGUE [None]
  - FEELING ABNORMAL [None]
  - FRUSTRATION [None]
  - HYPOCHONDRIASIS [None]
  - INFECTION [None]
  - INJECTION SITE RASH [None]
  - LOCALISED OEDEMA [None]
  - LOGORRHOEA [None]
  - MALAISE [None]
  - NAUSEA [None]
  - PSORIASIS [None]
  - SCAB [None]
  - SKIN BURNING SENSATION [None]
  - THINKING ABNORMAL [None]
  - THYROID DISORDER [None]
